FAERS Safety Report 5518887-8 (Version None)
Quarter: 2007Q4

REPORT INFORMATION
  Report Type: 
  Country: None (occurrence: None)
  Receive Date: 20071114
  Receipt Date: 20071106
  Transmission Date: 20080405
  Serious: Yes (Hospitalization, Other)
  Sender: FDA-Public Use
  Company Number: 163-21880-07081936

PATIENT
  Age: 70 Year
  Sex: Female

DRUGS (2)
  1. REVLIMID [Suspect]
     Indication: MYELODYSPLASTIC SYNDROME
     Dosage: 10 MG, QD, ORAL
     Route: 048
     Dates: start: 20070605, end: 20070724
  2. ARANESP [Concomitant]

REACTIONS (4)
  - ASCITES [None]
  - DISEASE PROGRESSION [None]
  - SPLENOMEGALY [None]
  - THROMBOCYTOPENIA [None]
